FAERS Safety Report 5787647-5 (Version None)
Quarter: 2008Q2

REPORT INFORMATION
  Report Type: 
  Country: None (occurrence: None)
  Receive Date: 20080623
  Receipt Date: 20080623
  Transmission Date: 20081010
  Serious: No
  Sender: FDA-Public Use
  Company Number: None

PATIENT

DRUGS (2)
  1. XYLOCAINE [Suspect]
     Indication: DENTAL TREATMENT
     Dosage: AS NEEDED PREOP DENTAL  SEVERAL MONTHS
     Route: 004
     Dates: start: 20080401, end: 20080601
  2. XYLOCAINE [Suspect]

REACTIONS (2)
  - DRUG INEFFECTIVE [None]
  - PHARMACEUTICAL PRODUCT COMPLAINT [None]
